FAERS Safety Report 11001837 (Version 2)
Quarter: 2015Q2

REPORT INFORMATION
  Report Type: Spontaneous
  Country: FR (occurrence: FR)
  Receive Date: 20150408
  Receipt Date: 20150414
  Transmission Date: 20150821
  Serious: Yes (Hospitalization)
  Sender: FDA-Public Use
  Company Number: FR-PFIZER INC-2015116494

PATIENT
  Age: 39 Year
  Sex: Male

DRUGS (9)
  1. HUMIRA [Suspect]
     Active Substance: ADALIMUMAB
     Indication: CROHN^S DISEASE
     Dosage: 1 DF, 2X/WEEK
     Route: 058
     Dates: start: 20140120
  2. ANTI TNF ALPHA [Concomitant]
     Dosage: UNK
     Dates: start: 20140224
  3. IMUREL [Suspect]
     Active Substance: AZATHIOPRINE SODIUM
     Indication: CROHN^S DISEASE
     Dosage: 50 MG, 3X/DAY
     Route: 048
     Dates: end: 20140225
  4. AMOXICILLIN. [Concomitant]
     Active Substance: AMOXICILLIN
     Indication: PYREXIA
     Dosage: 1 G, 3X/DAY
     Dates: start: 201402
  5. OFLOCET [Concomitant]
     Active Substance: OFLOXACIN
     Indication: RESPIRATORY DISORDER
  6. AMOXICILLIN. [Concomitant]
     Active Substance: AMOXICILLIN
     Indication: RESPIRATORY DISORDER
     Dosage: 3 G, DAILY
     Dates: start: 20140301
  7. AMOXICILLIN. [Concomitant]
     Active Substance: AMOXICILLIN
     Indication: BRONCHITIS
  8. MEDROL [Suspect]
     Active Substance: METHYLPREDNISOLONE
     Dosage: 20 MG, DAILY
     Route: 048
  9. OFLOCET [Concomitant]
     Active Substance: OFLOXACIN
     Indication: PYREXIA
     Dosage: 200 MG, 2X/DAY
     Dates: start: 20140301

REACTIONS (2)
  - Paronychia [Recovered/Resolved]
  - Pneumocystis jirovecii pneumonia [Recovered/Resolved]

NARRATIVE: CASE EVENT DATE: 20140304
